FAERS Safety Report 23970675 (Version 2)
Quarter: 2024Q3

REPORT INFORMATION
  Report Type: Spontaneous
  Country: US (occurrence: US)
  Receive Date: 20240613
  Receipt Date: 20240717
  Transmission Date: 20241016
  Serious: No
  Sender: JOHNSON AND JOHNSON
  Company Number: US-JNJFOC-20240607366

PATIENT
  Age: 38 Year
  Sex: Female

DRUGS (2)
  1. TREMFYA [Suspect]
     Active Substance: GUSELKUMAB
     Indication: Psoriasis
     Route: 058
     Dates: start: 202401
  2. TREMFYA [Suspect]
     Active Substance: GUSELKUMAB

REACTIONS (3)
  - Device issue [Unknown]
  - Needle issue [Unknown]
  - Product dose omission issue [Unknown]

NARRATIVE: CASE EVENT DATE: 20240603
